FAERS Safety Report 5354212-3 (Version None)
Quarter: 2007Q2

REPORT INFORMATION
  Report Type: 
  Country: None (occurrence: None)
  Receive Date: 20070521
  Receipt Date: 20070411
  Transmission Date: 20071010
  Serious: No
  Sender: FDA-Public Use
  Company Number: WAES 0704USA02301

PATIENT
  Age: 62 Year
  Sex: Male

DRUGS (7)
  1. JANUVIA [Suspect]
     Indication: DIABETES MELLITUS
     Dosage: 100 MG/DAILY/PO
     Route: 048
  2. . [Concomitant]
  3. TOPROL-XL [Concomitant]
  4. FOLIC ACID [Concomitant]
  5. GLIMEPIRIDE [Concomitant]
  6. LISINOPRIL [Concomitant]
  7. LOVASTATIN [Concomitant]

REACTIONS (2)
  - BLOOD CHOLESTEROL INCREASED [None]
  - BLOOD TRIGLYCERIDES INCREASED [None]
